FAERS Safety Report 15740211 (Version 1)
Quarter: 2018Q4

REPORT INFORMATION
  Report Type: Spontaneous
  Country: US (occurrence: US)
  Receive Date: 20181219
  Receipt Date: 20181219
  Transmission Date: 20190205
  Serious: Yes (Other)
  Sender: FDA-Public Use
  Company Number: US-PFIZER INC-2018516677

PATIENT
  Age: 55 Year
  Sex: Female
  Weight: 86.18 kg

DRUGS (2)
  1. LYRICA [Suspect]
     Active Substance: PREGABALIN
     Indication: INTERVERTEBRAL DISC DEGENERATION
     Dosage: 450 MG, DAILY (TAKES CAPSULES FOUR TIMES A DAY BY MOUTH FOR A TOTAL OF 450 MG)
     Route: 048
     Dates: end: 201806
  2. LYRICA [Suspect]
     Active Substance: PREGABALIN
     Indication: FIBROMYALGIA
     Dosage: UNK

REACTIONS (6)
  - Pain in extremity [Unknown]
  - Wrist fracture [Unknown]
  - Pain [Unknown]
  - Bone disorder [Unknown]
  - Bone pain [Unknown]
  - Arthralgia [Unknown]
